FAERS Safety Report 6588419-4 (Version None)
Quarter: 2010Q1

REPORT INFORMATION
  Report Type: 
  Country: None (occurrence: None)
  Receive Date: 20100218
  Receipt Date: 20100208
  Transmission Date: 20100710
  Serious: Yes (Other)
  Sender: FDA-Public Use
  Company Number: CN-ROCHE-685158

PATIENT
  Age: 65 Year
  Sex: Male

DRUGS (6)
  1. MYCOPHENOLATE MOFETIL [Suspect]
     Dosage: ONE WEEK PRE-OPERATIVELY; CO-INDICATION: PROPHYLAXIS, PENETRATION KERATOPLASTY REJECTION
     Route: 048
  2. TACROLIMUS [Suspect]
     Dosage: ONE WEEK PRE-OPERATIVELY. CO-INDICATION: PROPHYLAXIS, PENETRATION KERATOPLASTY REJECTION
     Route: 065
  3. PREDNISONE [Suspect]
     Dosage: CO-INDICATION: PROPHYLAXIS, PENETRATION KERATOPLASTY REJECTION
     Route: 065
  4. ACYCLOVIR [Suspect]
     Dosage: CO-INDICATION: PROPHYLAXIS, PENETRATION KERATOPLASTY REJECTION
     Route: 065
  5. OFLOXACIN [Suspect]
     Dosage: DRUG REPORTED AS ALLERGAN; CO-INDICATION: PROPHYLAXIS, PENETRATION KERATOPLASTY REJECTION
     Route: 061
  6. MITOMYCIN [Suspect]
     Indication: DRUG USE FOR UNKNOWN INDICATION
     Route: 065

REACTIONS (1)
  - TRANSPLANT REJECTION [None]
